FAERS Safety Report 17107279 (Version 1)
Quarter: 2019Q4

REPORT INFORMATION
  Report Type: Spontaneous
  Country: FR (occurrence: FR)
  Receive Date: 20191203
  Receipt Date: 20191203
  Transmission Date: 20200122
  Serious: Yes (Disabling)
  Sender: FDA-Public Use
  Company Number: FR-MYLANLABS-2019M1116673

PATIENT
  Age: 46 Year
  Sex: Male

DRUGS (5)
  1. LOPERAMIDE [Suspect]
     Active Substance: LOPERAMIDE
     Indication: DIARRHOEA
     Dosage: 2 MILLIGRAM, QD
     Route: 048
     Dates: start: 2002
  2. VERATRAN [Suspect]
     Active Substance: CLOTIAZEPAM
     Indication: DEPRESSION
     Dosage: 1 DOSAGE FORM, QD
     Route: 048
     Dates: start: 2009
  3. PAROXETINE. [Suspect]
     Active Substance: PAROXETINE
     Indication: DEPRESSION
     Dosage: 20 MILLIGRAM, QD
     Route: 048
     Dates: start: 2012
  4. IMUREL                             /00001501/ [Suspect]
     Active Substance: AZATHIOPRINE SODIUM
     Indication: CROHN^S DISEASE
     Dosage: 3 DOSAGE FORM, QD
     Route: 048
     Dates: start: 1998
  5. KEPPRA [Suspect]
     Active Substance: LEVETIRACETAM
     Indication: EPILEPSY
     Dosage: 2 DOSAGE FORM, QD
     Route: 048
     Dates: start: 2013

REACTIONS (1)
  - Hyperhidrosis [Not Recovered/Not Resolved]

NARRATIVE: CASE EVENT DATE: 201706
